FAERS Safety Report 19587994 (Version 1)
Quarter: 2021Q3

REPORT INFORMATION
  Report Type: Spontaneous
  Country: US (occurrence: US)
  Receive Date: 20210721
  Receipt Date: 20210721
  Transmission Date: 20211014
  Serious: No
  Sender: FDA-Public Use
  Company Number: US-BEH-2021134126

PATIENT
  Sex: Male

DRUGS (1)
  1. HIZENTRA [Suspect]
     Active Substance: HUMAN IMMUNOGLOBULIN G
     Dosage: 10 GRAM/ 50ML VIALS (100 ML TOTAL) IN 4 SITES (ABDOMINAL), QW
     Route: 058
     Dates: start: 2021

REACTIONS (1)
  - Hiccups [Unknown]
